FAERS Safety Report 8073183-2 (Version None)
Quarter: 2012Q1

REPORT INFORMATION
  Report Type: 
  Country: None (occurrence: None)
  Receive Date: 20120123
  Receipt Date: 20120123
  Transmission Date: 20120608
  Serious: Yes (Hospitalization)
  Sender: FDA-Public Use
  Company Number: None

PATIENT
  Age: 65 Year
  Sex: Male
  Weight: 98.3 kg

DRUGS (1)
  1. METHADONE HCL [Suspect]
     Dosage: 90 MG AM PO
     Route: 048
     Dates: start: 20111220, end: 20111221

REACTIONS (1)
  - RESPIRATORY DEPRESSION [None]
